FAERS Safety Report 7055230-X (Version None)
Quarter: 2010Q4

REPORT INFORMATION
  Report Type: 
  Country: None (occurrence: None)
  Receive Date: 20101021
  Receipt Date: 20101007
  Transmission Date: 20110411
  Serious: Yes (Hospitalization)
  Sender: FDA-Public Use
  Company Number: PHHY2010BE64508

PATIENT
  Age: 50 Year
  Sex: Male

DRUGS (1)
  1. GLEEVEC [Suspect]
     Indication: GASTROINTESTINAL STROMAL TUMOUR
     Dosage: 400 MG, QD
     Dates: start: 20100101, end: 20100926

REACTIONS (5)
  - ENDOCARDITIS [None]
  - HYPOALBUMINAEMIA [None]
  - PROTEINURIA [None]
  - PYREXIA [None]
  - STAPHYLOCOCCAL SEPSIS [None]
